FAERS Safety Report 13340854 (Version 1)
Quarter: 2017Q1

REPORT INFORMATION
  Report Type: Spontaneous
  Country: US (occurrence: US)
  Receive Date: 20170315
  Receipt Date: 20170315
  Transmission Date: 20170428
  Serious: No
  Sender: FDA-Public Use
  Company Number: None

PATIENT
  Age: 28 Year
  Sex: Male

DRUGS (1)
  1. ENTYVIO [Suspect]
     Active Substance: VEDOLIZUMAB
     Indication: COLITIS ULCERATIVE
     Dosage: Q 8 WEEKS IV
     Route: 042
     Dates: start: 20170116, end: 20170213

REACTIONS (1)
  - Alopecia [None]

NARRATIVE: CASE EVENT DATE: 20170130
